FAERS Safety Report 11647444 (Version 1)
Quarter: 2015Q4

REPORT INFORMATION
  Report Type: Spontaneous
  Country: US (occurrence: None)
  Receive Date: 20151019
  Receipt Date: 20151019
  Transmission Date: 20160304
  Serious: Yes (Life-Threatening)
  Sender: FDA-Public Use
  Company Number: None

PATIENT
  Age: 26 Year
  Sex: Female
  Weight: 55.34 kg

DRUGS (5)
  1. CIPROFLOXACIN 500 MG DR. REDDY^S LAB [Suspect]
     Active Substance: CIPROFLOXACIN
     Indication: KIDNEY INFECTION
     Route: 048
     Dates: start: 20151001, end: 20151007
  2. MIRENA [Concomitant]
     Active Substance: LEVONORGESTREL
  3. VITAMIN B12 [Concomitant]
     Active Substance: CYANOCOBALAMIN
  4. CIPROFLOXACIN 500 MG DR. REDDY^S LAB [Suspect]
     Active Substance: CIPROFLOXACIN
     Indication: URINARY TRACT INFECTION
     Route: 048
     Dates: start: 20151001, end: 20151007
  5. ASACOL [Concomitant]
     Active Substance: MESALAMINE

REACTIONS (11)
  - Nausea [None]
  - Insomnia [None]
  - Decreased appetite [None]
  - Affect lability [None]
  - Disturbance in attention [None]
  - Executive dysfunction [None]
  - Anxiety [None]
  - Confusional state [None]
  - Depression [None]
  - Speech disorder [None]
  - Suicidal ideation [None]

NARRATIVE: CASE EVENT DATE: 20151005
